FAERS Safety Report 8514518 (Version 10)
Quarter: 2014Q2

REPORT INFORMATION
  Report Type: Spontaneous
  Country: CA (occurrence: CA)
  Receive Date: 20120416
  Receipt Date: 20140514
  Transmission Date: 20141212
  Serious: Yes (Other)
  Sender: FDA-Public Use
  Company Number: CA-ROCHE-1058192

PATIENT
  Age: 52 Year
  Sex: Male

DRUGS (7)
  1. XOLAIR [Suspect]
     Indication: ASTHMA
     Route: 058
     Dates: start: 20110809
  2. XOLAIR [Suspect]
     Route: 058
     Dates: start: 20120206
  3. XOLAIR [Suspect]
     Route: 058
     Dates: start: 20130319
  4. XOLAIR [Suspect]
     Route: 058
     Dates: start: 20130516
  5. XOLAIR [Suspect]
     Route: 058
     Dates: start: 20131209
  6. XOLAIR [Suspect]
     Route: 058
     Dates: start: 20140303
  7. XOLAIR [Suspect]
     Route: 058
     Dates: start: 20140324

REACTIONS (13)
  - Exercise tolerance decreased [Unknown]
  - Nasal congestion [Unknown]
  - Headache [Unknown]
  - Skin ulcer [Recovered/Resolved]
  - Wheezing [Recovered/Resolved]
  - Nasopharyngitis [Recovered/Resolved]
  - Influenza [Recovered/Resolved]
  - Influenza like illness [Unknown]
  - Chest discomfort [Unknown]
  - Respiratory disorder [Unknown]
  - Cough [Unknown]
  - Herpes zoster [Unknown]
  - Blood pressure increased [Not Recovered/Not Resolved]
